FAERS Safety Report 5720444-5 (Version None)
Quarter: 2008Q2

REPORT INFORMATION
  Report Type: 
  Country: None (occurrence: None)
  Receive Date: 20080423
  Receipt Date: 20070514
  Transmission Date: 20081010
  Serious: Yes (Other)
  Sender: FDA-Public Use
  Company Number: 240993

PATIENT
  Age: 42 Year
  Sex: Female
  Weight: 96.6 kg

DRUGS (1)
  1. AVASTIN [Suspect]
     Indication: COLON CANCER
     Dosage: 500 MG, Q2W, INTRAVENOUS
     Route: 042
     Dates: start: 20060925

REACTIONS (3)
  - BLOOD PRESSURE INCREASED [None]
  - EYE SWELLING [None]
  - SWELLING FACE [None]
